FAERS Safety Report 9995033 (Version 1)
Quarter: 2014Q1

REPORT INFORMATION
  Report Type: Spontaneous
  Country: US (occurrence: None)
  Receive Date: 20140218
  Receipt Date: 20140218
  Transmission Date: 20141002
  Serious: Yes (Other)
  Sender: FDA-Public Use
  Company Number: 1000050755

PATIENT
  Age: 47 Year
  Sex: Female

DRUGS (4)
  1. VIIBRYD [Suspect]
     Indication: BIPOLAR DISORDER
     Dosage: 10 MG (10 MG, 1 IN 1 D), ORAL
     Route: 048
     Dates: start: 201310, end: 201310
  2. PRIMIDONE (PRIMIDONE) (PRIMIDONE) [Concomitant]
  3. NEXIUM (ESOMEPRAZOLE (ESOMEPRAZOLE) [Concomitant]
  4. VERAPAMIL (VERAPAMIL) (VERAPAMIL)? [Concomitant]

REACTIONS (4)
  - Off label use [None]
  - Diarrhoea [None]
  - Abdominal pain upper [None]
  - Abdominal distension [None]
